FAERS Safety Report 18026459 (Version 3)
Quarter: 2021Q1

REPORT INFORMATION
  Report Type: Spontaneous
  Country: US (occurrence: US)
  Receive Date: 20200715
  Receipt Date: 20210119
  Transmission Date: 20210419
  Serious: No
  Sender: FDA-Public Use
  Company Number: US-BEH-2020120014

PATIENT
  Sex: Female

DRUGS (3)
  1. DOXYCYCLINE. [Concomitant]
     Active Substance: DOXYCYCLINE
     Dosage: UNK, QD
     Route: 065
  2. HIZENTRA [Suspect]
     Active Substance: HUMAN IMMUNOGLOBULIN G
     Indication: HYPOGAMMAGLOBULINAEMIA
     Dosage: 1 GRAM, EVERY 3 DAYS
     Route: 058
     Dates: start: 20200903
  3. HIZENTRA [Suspect]
     Active Substance: HUMAN IMMUNOGLOBULIN G
     Indication: IMMUNODEFICIENCY COMMON VARIABLE
     Dosage: 10 GRAM, QOW
     Route: 058
     Dates: start: 201912

REACTIONS (4)
  - Malaise [Recovered/Resolved]
  - Headache [Unknown]
  - Headache [Recovered/Resolved]
  - Swelling [Unknown]
